FAERS Safety Report 7961309-8 (Version None)
Quarter: 2011Q4

REPORT INFORMATION
  Report Type: 
  Country: None (occurrence: None)
  Receive Date: 20111201
  Receipt Date: 20111201
  Transmission Date: 20120403
  Serious: Yes (Hospitalization)
  Sender: FDA-Public Use
  Company Number: None

PATIENT
  Sex: Female

DRUGS (1)
  1. AMPYRA [Suspect]
     Indication: MULTIPLE SCLEROSIS
     Dosage: 10MG BID ORALLY
     Route: 048
     Dates: start: 20111108, end: 20111113

REACTIONS (8)
  - ASTHENIA [None]
  - PARAESTHESIA [None]
  - FEELING ABNORMAL [None]
  - PSYCHOMOTOR HYPERACTIVITY [None]
  - DIZZINESS [None]
  - URINARY TRACT INFECTION [None]
  - INSOMNIA [None]
  - EYE DISORDER [None]
